FAERS Safety Report 5891804-7 (Version None)
Quarter: 2008Q3

REPORT INFORMATION
  Report Type: 
  Country: None (occurrence: None)
  Receive Date: 20080922
  Receipt Date: 20080909
  Transmission Date: 20090109
  Serious: Yes (Hospitalization, Disabling, Other)
  Sender: FDA-Public Use
  Company Number: US-ELI_LILLY_AND_COMPANY-US200809002166

PATIENT
  Sex: Male

DRUGS (6)
  1. ZYPREXA [Suspect]
     Indication: AGITATION
     Dosage: 5 MG, 4/D
     Dates: start: 20060510
  2. ZYPREXA [Suspect]
     Dosage: 5 MG, EACH EVENING
  3. KLONOPIN [Concomitant]
     Indication: ANXIETY
     Dosage: 1 MG, AS NEEDED
  4. LEVOXYL [Concomitant]
     Dosage: 137 UG, DAILY (1/D)
  5. LITHIUM CARBONATE [Concomitant]
     Dosage: 1200 MG, QOD
  6. LITHIUM CARBONATE [Concomitant]
     Dosage: 1500 MG, QOD

REACTIONS (22)
  - ABNORMAL BEHAVIOUR [None]
  - BALANCE DISORDER [None]
  - CEREBELLAR ATAXIA [None]
  - DECREASED APPETITE [None]
  - DYSARTHRIA [None]
  - DYSGRAPHIA [None]
  - FALL [None]
  - FLUID INTAKE REDUCED [None]
  - GAIT DISTURBANCE [None]
  - HEAD INJURY [None]
  - HOMICIDAL IDEATION [None]
  - LACERATION [None]
  - LIVER FUNCTION TEST ABNORMAL [None]
  - MENTAL STATUS CHANGES [None]
  - MUSCULOSKELETAL STIFFNESS [None]
  - NAUSEA [None]
  - NEUROLEPTIC MALIGNANT SYNDROME [None]
  - PNEUMONIA [None]
  - PYREXIA [None]
  - URINARY TRACT INFECTION [None]
  - VISUAL IMPAIRMENT [None]
  - VOMITING [None]
